FAERS Safety Report 7248934-7 (Version None)
Quarter: 2011Q1

REPORT INFORMATION
  Report Type: 
  Country: None (occurrence: None)
  Receive Date: 20110128
  Receipt Date: 20100812
  Transmission Date: 20110831
  Serious: Yes (Other)
  Sender: FDA-Public Use
  Company Number: US-BAYER-201024047NA

PATIENT
  Sex: Female
  Weight: 86.364 kg

DRUGS (6)
  1. YAZ [Suspect]
     Indication: CONTRACEPTION
     Route: 048
     Dates: start: 20060801, end: 20081001
  2. YASMIN [Suspect]
  3. YAZ [Suspect]
  4. YAZ [Suspect]
  5. YASMIN [Suspect]
     Route: 048
     Dates: start: 20060801, end: 20081001
  6. YASMIN [Suspect]

REACTIONS (6)
  - CHOLELITHIASIS [None]
  - ABDOMINAL PAIN [None]
  - CHEST PAIN [None]
  - PALPITATIONS [None]
  - VOMITING [None]
  - DIARRHOEA [None]
